FAERS Safety Report 8816393 (Version 1)
Quarter: 2012Q4

REPORT INFORMATION
  Report Type: Spontaneous
  Country: US (occurrence: None)
  Receive Date: 20120928
  Receipt Date: 20120928
  Transmission Date: 20130627
  Serious: Yes (Hospitalization)
  Sender: FDA-Public Use
  Company Number: None

PATIENT
  Age: 68 Year
  Sex: Male
  Weight: 85 kg

DRUGS (9)
  1. ISOTRETINOIN [Suspect]
     Indication: ALZHEIMER^S DISEASE
     Route: 048
     Dates: start: 20120719, end: 20120912
  2. TAMSULOSIN [Concomitant]
  3. NADOLOL [Concomitant]
  4. HYDRODIURIL [Concomitant]
  5. NAMENDA [Concomitant]
  6. SERTRALINE [Concomitant]
  7. DONEPEZIL [Concomitant]
  8. ASPIRIN [Concomitant]
  9. TYLENOL [Concomitant]

REACTIONS (2)
  - Grand mal convulsion [None]
  - Fall [None]
